FAERS Safety Report 9212710 (Version 2)
Quarter: 2013Q2

REPORT INFORMATION
  Report Type: Spontaneous
  Country: US (occurrence: US)
  Receive Date: 20130405
  Receipt Date: 20130419
  Transmission Date: 20140414
  Serious: Yes (Hospitalization)
  Sender: FDA-Public Use
  Company Number: US-BIOGENIDEC-2013BI029835

PATIENT
  Age: 52 Year
  Sex: Male

DRUGS (2)
  1. TYSABRI [Suspect]
     Indication: MULTIPLE SCLEROSIS
     Route: 042
     Dates: start: 20130213
  2. AVONEX [Concomitant]
     Indication: MULTIPLE SCLEROSIS
     Route: 030
     Dates: start: 19990101

REACTIONS (7)
  - Urinary tract infection [Recovered/Resolved]
  - Back pain [Unknown]
  - Pyrexia [Unknown]
  - Dysgraphia [Unknown]
  - Muscular weakness [Unknown]
  - Muscle spasms [Unknown]
  - Influenza [Unknown]
